FAERS Safety Report 25923211 (Version 2)
Quarter: 2025Q4

REPORT INFORMATION
  Report Type: Spontaneous
  Country: US (occurrence: US)
  Receive Date: 20251015
  Receipt Date: 20251020
  Transmission Date: 20260117
  Serious: Yes (Other)
  Sender: Kenvue
  Company Number: US-KENVUE-20251003167

PATIENT
  Sex: Male

DRUGS (2)
  1. LISTERINE COOL MINT ANTISEPTIC [Suspect]
     Active Substance: EUCALYPTOL\MENTHOL\METHYL SALICYLATE\THYMOL
     Indication: Thirst
     Dosage: UNK UNK, ONCE A DAY
     Route: 048
  2. LISTERINE COOL MINT ANTISEPTIC [Suspect]
     Active Substance: EUCALYPTOL\MENTHOL\METHYL SALICYLATE\THYMOL
     Dosage: UNK UNK, SOMETIME TWICE A DAY
     Route: 048

REACTIONS (3)
  - Drug abuse [Unknown]
  - Malaise [Unknown]
  - Vomiting [Unknown]
